FAERS Safety Report 7172387-0 (Version None)
Quarter: 2010Q4

REPORT INFORMATION
  Report Type: 
  Country: None (occurrence: None)
  Receive Date: 20101217
  Receipt Date: 20101208
  Transmission Date: 20110411
  Serious: Yes (Other)
  Sender: FDA-Public Use
  Company Number: BR-AMGEN-BRASP2010008527

PATIENT

DRUGS (11)
  1. ENBREL [Suspect]
     Indication: RHEUMATOID ARTHRITIS
     Dosage: 50 MG, 1X/DAY
     Route: 058
     Dates: start: 20100614
  2. ENBREL [Suspect]
  3. CYCLOSPORINE [Concomitant]
     Indication: RHEUMATOID ARTHRITIS
  4. CYCLOSPORINE [Concomitant]
     Dosage: UNK
  5. INSULIN [Concomitant]
     Indication: DIABETES MELLITUS
  6. PURAN T4 [Concomitant]
     Indication: HYPOTHYROIDISM
  7. ENALAPRIL [Concomitant]
     Indication: HYPERTENSION
  8. OMEPRAZOLE [Concomitant]
  9. ASPIRIN [Concomitant]
  10. LAMIVUDINE [Concomitant]
     Indication: LIVER INJURY
  11. LAMIVUDINE [Concomitant]
     Indication: HEPATITIS

REACTIONS (4)
  - ANAEMIA [None]
  - BLOOD CREATININE INCREASED [None]
  - BLOOD UREA INCREASED [None]
  - RED BLOOD CELL SEDIMENTATION RATE INCREASED [None]
